FAERS Safety Report 9104803 (Version 1)
Quarter: 2013Q1

REPORT INFORMATION
  Report Type: Spontaneous
  Country: US (occurrence: US)
  Receive Date: 20130219
  Receipt Date: 20130219
  Transmission Date: 20140127
  Serious: No
  Sender: FDA-Public Use
  Company Number: US-BIOGENIDEC-2013BI014373

PATIENT
  Age: 46 Year
  Sex: Female

DRUGS (2)
  1. TYSABRI [Suspect]
     Indication: MULTIPLE SCLEROSIS
     Route: 042
     Dates: start: 20050201, end: 20050201
  2. TYSABRI [Suspect]
     Indication: MULTIPLE SCLEROSIS
     Route: 042
     Dates: start: 20090206

REACTIONS (6)
  - Sudden onset of sleep [Not Recovered/Not Resolved]
  - Muscle spasticity [Unknown]
  - Restless legs syndrome [Unknown]
  - Restlessness [Unknown]
  - Influenza [Recovered/Resolved]
  - Asthenia [Not Recovered/Not Resolved]
